FAERS Safety Report 12968036 (Version 2)
Quarter: 2016Q4

REPORT INFORMATION
  Report Type: Spontaneous
  Country: US (occurrence: US)
  Receive Date: 20161123
  Receipt Date: 20161201
  Transmission Date: 20170207
  Serious: Yes (Other)
  Sender: FDA-Public Use
  Company Number: US-DRREDDYS-USA/USA/16/0085008

PATIENT
  Age: 61 Year
  Sex: Male

DRUGS (3)
  1. RITONAVIR. [Interacting]
     Active Substance: RITONAVIR
     Indication: HEPATITIS C
     Route: 065
  2. TACROLIMUS. [Suspect]
     Active Substance: TACROLIMUS
     Indication: PRODUCT USED FOR UNKNOWN INDICATION
     Route: 065
  3. TACROLIMUS. [Interacting]
     Active Substance: TACROLIMUS
     Route: 065

REACTIONS (2)
  - Renal tubular necrosis [Unknown]
  - Drug interaction [Unknown]
